FAERS Safety Report 25524824 (Version 2)
Quarter: 2025Q3

REPORT INFORMATION
  Report Type: Spontaneous
  Country: KR (occurrence: KR)
  Receive Date: 20250707
  Receipt Date: 20250710
  Transmission Date: 20251021
  Serious: Yes (Hospitalization)
  Sender: SAMSUNG BIOEPIS
  Company Number: KR-SAMSUNG BIOEPIS-SB-2025-23035

PATIENT
  Age: 61 Year
  Sex: Female

DRUGS (13)
  1. TRASTUZUMAB [Suspect]
     Active Substance: TRASTUZUMAB
     Indication: Gallbladder cancer
     Route: 042
     Dates: start: 20250701
  2. NIVOLUMAB [Suspect]
     Active Substance: NIVOLUMAB
     Indication: Gallbladder cancer
     Route: 042
     Dates: start: 20250701
  3. GEMCITABINE [Suspect]
     Active Substance: GEMCITABINE
     Indication: Gallbladder cancer
     Route: 042
     Dates: start: 20250701
  4. CISPLATIN [Suspect]
     Active Substance: CISPLATIN
     Indication: Gallbladder cancer
     Route: 042
  5. Norzyme [Concomitant]
     Indication: Prophylaxis
     Dosage: CAPSULE;
     Dates: start: 20241112
  6. MAGNESIUM OXIDE [Concomitant]
     Active Substance: MAGNESIUM OXIDE
     Indication: Prophylaxis
     Dosage: CAPSULE;
     Dates: start: 20241112
  7. Fexuclue [Concomitant]
     Indication: Prophylaxis
     Dates: start: 20240318
  8. CNU [Concomitant]
     Indication: Prophylaxis
     Dosage: CAPSULE;
     Dates: start: 20250211
  9. ARONAMIN C PLUS [Concomitant]
     Indication: Prophylaxis
     Dates: start: 20250211
  10. CHLORPHENIRAMINE MALEATE [Concomitant]
     Active Substance: CHLORPHENIRAMINE MALEATE
     Indication: Prophylaxis
     Dosage: 4MG/2ML;
     Dates: start: 20250701
  11. GASTER [Concomitant]
     Active Substance: FAMOTIDINE
     Indication: Prophylaxis
     Dosage: 20MG/10ML;
     Dates: start: 20250701
  12. ALOXI [Concomitant]
     Active Substance: PALONOSETRON HYDROCHLORIDE
     Indication: Prophylaxis
     Dosage: 0.25MG/5ML;
     Dates: start: 20250701
  13. LAEVAN FORTE [Concomitant]
     Indication: Prophylaxis
     Dosage: CREAM;
     Dates: start: 20241015

REACTIONS (2)
  - Pyrexia [Recovering/Resolving]
  - Off label use [Unknown]

NARRATIVE: CASE EVENT DATE: 20250701
